FAERS Safety Report 9180317 (Version 5)
Quarter: 2013Q2

REPORT INFORMATION
  Report Type: Spontaneous
  Country: US (occurrence: US)
  Receive Date: 20130322
  Receipt Date: 20130508
  Transmission Date: 20140414
  Serious: Yes (Hospitalization, Other)
  Sender: FDA-Public Use
  Company Number: US-BIOGENIDEC-2013BI023844

PATIENT
  Age: 55 Year
  Sex: Male

DRUGS (1)
  1. TYSABRI [Suspect]
     Indication: MULTIPLE SCLEROSIS
     Route: 042
     Dates: start: 20121107

REACTIONS (7)
  - Urinary tract infection [Recovered/Resolved]
  - Thrombosis [Recovered/Resolved]
  - Pyrexia [Recovered/Resolved]
  - Catheter site haemorrhage [Recovered/Resolved]
  - Asthenia [Recovered/Resolved]
  - Catheter placement [Not Recovered/Not Resolved]
  - Gait disturbance [Not Recovered/Not Resolved]
